FAERS Safety Report 6014796-9 (Version None)
Quarter: 2008Q4

REPORT INFORMATION
  Report Type: 
  Country: None (occurrence: None)
  Receive Date: 20081219
  Receipt Date: 20081215
  Transmission Date: 20090506
  Serious: Yes (Other)
  Sender: FDA-Public Use
  Company Number: PHEH2008US11120

PATIENT
  Sex: Female

DRUGS (4)
  1. TEKTURNA [Suspect]
     Dosage: UNK
     Dates: start: 20081210
  2. BENICAR [Concomitant]
  3. DIURETICS [Concomitant]
  4. POTASSIUM CHLORIDE [Concomitant]

REACTIONS (3)
  - FEELING ABNORMAL [None]
  - OEDEMA PERIPHERAL [None]
  - SEDATION [None]
